FAERS Safety Report 12724385 (Version 1)
Quarter: 2016Q3

REPORT INFORMATION
  Report Type: Spontaneous
  Country: US (occurrence: US)
  Receive Date: 20160906
  Receipt Date: 20160906
  Transmission Date: 20161109
  Serious: Yes (Disabling)
  Sender: FDA-Public Use
  Company Number: None

PATIENT
  Age: 62 Year
  Sex: Female
  Weight: 82.35 kg

DRUGS (11)
  1. CYMBALTA [Suspect]
     Active Substance: DULOXETINE HYDROCHLORIDE
     Indication: FIBROMYALGIA
     Route: 048
     Dates: start: 20121015, end: 20160601
  2. VITAMIN B1 [Concomitant]
     Active Substance: THIAMINE HYDROCHLORIDE
  3. ASA [Concomitant]
     Active Substance: ASPIRIN
  4. FENTANYL. [Concomitant]
     Active Substance: FENTANYL
  5. VITAMIN B12 [Concomitant]
     Active Substance: CYANOCOBALAMIN
  6. VITAMIN B6 [Concomitant]
     Active Substance: PYRIDOXINE HYDROCHLORIDE
  7. VITAMIN D [Concomitant]
     Active Substance: CHOLECALCIFEROL
  8. DILTIAZEM. [Concomitant]
     Active Substance: DILTIAZEM
  9. GABAPENTIN. [Concomitant]
     Active Substance: GABAPENTIN
  10. CORTIFFACT [Concomitant]
     Active Substance: FACTOR XIII CONCENTRATE (HUMAN)
  11. VITAMIN C [Concomitant]
     Active Substance: ASCORBIC ACID

REACTIONS (5)
  - Seizure [None]
  - Contraindicated product administered [None]
  - Head injury [None]
  - Mental disorder [None]
  - Contusion [None]

NARRATIVE: CASE EVENT DATE: 20121015
